FAERS Safety Report 11905744 (Version 1)
Quarter: 2016Q1

REPORT INFORMATION
  Report Type: Spontaneous
  Country: US (occurrence: US)
  Receive Date: 20160111
  Receipt Date: 20160111
  Transmission Date: 20160526
  Serious: Yes (Hospitalization, Other)
  Sender: FDA-Public Use
  Company Number: US-ACCORD-036914

PATIENT
  Age: 48 Year
  Sex: Male

DRUGS (6)
  1. BEVACIZUMAB [Suspect]
     Active Substance: BEVACIZUMAB
     Indication: COLORECTAL CANCER METASTATIC
     Dosage: FOLFOX WITH BEVACIZUMAB
  2. FOLINIC ACID [Concomitant]
     Active Substance: LEUCOVORIN
     Indication: COLORECTAL CANCER METASTATIC
     Dosage: FOLFOX WITH BEVACIZUMAB AND FOLFIRI WITH CETUXIMAB
  3. OXALIPLATIN. [Suspect]
     Active Substance: OXALIPLATIN
     Indication: COLORECTAL CANCER METASTATIC
     Dosage: FOLFOX WITH BEVACIZUMAB
  4. IRINOTECAN [Suspect]
     Active Substance: IRINOTECAN
     Indication: COLORECTAL CANCER METASTATIC
     Dosage: FOLFIRI WITH CETUXIMAB
  5. FLUOROURACIL. [Suspect]
     Active Substance: FLUOROURACIL
     Indication: COLORECTAL CANCER METASTATIC
     Dosage: FOLFOX WITH BEVACIZUMAB AND FOLFIRI WITH CETUXIMAB
  6. REGORAFENIB [Suspect]
     Active Substance: REGORAFENIB
     Indication: COLORECTAL CANCER METASTATIC
     Dosage: DUAL ORAL CHEMOTHERAPY REGIMEN WITH CAPECITABINE?CYTOTOXIC AND TARGETED THERAPY
     Route: 048

REACTIONS (10)
  - Treatment failure [Unknown]
  - Hyperbilirubinaemia [Recovered/Resolved]
  - Fatigue [Unknown]
  - Thrombocytopenia [Unknown]
  - Systemic candida [Unknown]
  - Mucosal inflammation [Unknown]
  - Bacteraemia [Unknown]
  - Hepatic function abnormal [Unknown]
  - Diarrhoea [Unknown]
  - Neutropenia [Recovered/Resolved]
